FAERS Safety Report 19732820 (Version 1)
Quarter: 2021Q3

REPORT INFORMATION
  Report Type: Spontaneous
  Country: US (occurrence: US)
  Receive Date: 20210822
  Receipt Date: 20210822
  Transmission Date: 20211014
  Serious: Yes (Other)
  Sender: FDA-Public Use
  Company Number: None

PATIENT
  Age: 73 Year
  Sex: Female
  Weight: 67.5 kg

DRUGS (10)
  1. ASA [Concomitant]
     Active Substance: ASPIRIN
  2. LEVOTHYROXINE SODIUM. [Concomitant]
     Active Substance: LEVOTHYROXINE SODIUM
  3. DICLOFENAC SODIUM TOPICAL GEL [Concomitant]
     Active Substance: DICLOFENAC SODIUM
  4. ATENOLOL. [Concomitant]
     Active Substance: ATENOLOL
  5. DYCLOMINE HYDROCHLORIDE [Concomitant]
  6. VITAMIN B,D,E [Concomitant]
  7. AMBIEN [Concomitant]
     Active Substance: ZOLPIDEM TARTRATE
  8. REPATHA [Suspect]
     Active Substance: EVOLOCUMAB
     Indication: BLOOD CHOLESTEROL INCREASED
     Dosage: ?          QUANTITY:1 INJECTION(S);OTHER FREQUENCY:EVERY 2 WEEKS;OTHER ROUTE:UNDER THE SKIN?
     Dates: start: 20210503, end: 20210809
  9. ALDACTOZIDE [Concomitant]
  10. COENZYME Q10 [Concomitant]
     Active Substance: DIETARY SUPPLEMENT\UBIDECARENONE

REACTIONS (6)
  - Myalgia [None]
  - Gait disturbance [None]
  - Muscle spasms [None]
  - Bone pain [None]
  - Balance disorder [None]
  - Arthralgia [None]

NARRATIVE: CASE EVENT DATE: 20210809
